FAERS Safety Report 8964147 (Version 2)
Quarter: 2013Q1

REPORT INFORMATION
  Report Type: Spontaneous
  Country: JP (occurrence: JP)
  Receive Date: 20121214
  Receipt Date: 20130304
  Transmission Date: 20140127
  Serious: Yes (Life-Threatening, Other)
  Sender: FDA-Public Use
  Company Number: JP-009507513-1212JPN005435

PATIENT
  Age: 75 Year
  Sex: Male
  Weight: 62 kg

DRUGS (6)
  1. JANUVIA TABLETS 50MG [Suspect]
     Indication: TYPE 2 DIABETES MELLITUS
     Dosage: 50 MG, QD
     Route: 048
     Dates: start: 20110921
  2. ACTOS [Concomitant]
     Indication: TYPE 2 DIABETES MELLITUS
     Dosage: 15 MG, QD
     Route: 048
     Dates: start: 201209
  3. METGLUCO [Concomitant]
     Indication: TYPE 2 DIABETES MELLITUS
     Dosage: 250 MG, TID
     Route: 048
     Dates: start: 20061015
  4. MICARDIS [Concomitant]
     Indication: HYPERTENSION
     Dosage: 20 MG, QD
     Route: 048
     Dates: start: 20081108
  5. MERISLON [Concomitant]
     Indication: DIZZINESS
     Dosage: 6 MG, FORMULATION : POR DIVIDED DOSE FREQUENCY UNKNOWN
     Route: 048
     Dates: start: 20080118
  6. VITAMEDIN CAPSULES [Concomitant]
     Dosage: 2 DF, BID
     Route: 048

REACTIONS (2)
  - Gingival cancer [Recovering/Resolving]
  - Tongue neoplasm malignant stage unspecified [Not Recovered/Not Resolved]
